FAERS Safety Report 4848058-X (Version None)
Quarter: 2005Q4

REPORT INFORMATION
  Report Type: 
  Country: None (occurrence: None)
  Receive Date: 20051206
  Receipt Date: 20051123
  Transmission Date: 20060501
  Serious: Yes (Other)
  Sender: FDA-Public Use
  Company Number: 2005-11-1709

PATIENT
  Age: 34 Year
  Sex: Male

DRUGS (1)
  1. INTRON A [Suspect]
     Indication: MULTIPLE SCLEROSIS
     Dosage: 250 MCG QOD SUBCUTANEOUS
     Route: 058
     Dates: start: 20031101

REACTIONS (1)
  - INJECTION SITE NECROSIS [None]
